FAERS Safety Report 17100568 (Version 1)
Quarter: 2019Q4

REPORT INFORMATION
  Report Type: Spontaneous
  Country: US (occurrence: US)
  Receive Date: 20191202
  Receipt Date: 20191202
  Transmission Date: 20200122
  Serious: Yes (Hospitalization)
  Sender: FDA-Public Use
  Company Number: US-BAYER-2019-212675

PATIENT
  Age: 44 Year
  Sex: Male

DRUGS (1)
  1. AFRIN SINUS [Suspect]
     Active Substance: OXYMETAZOLINE HYDROCHLORIDE
     Indication: SINUS CONGESTION
     Dosage: 30 MG, QD
     Dates: start: 20191031, end: 20191102

REACTIONS (3)
  - Incorrect dose administered [None]
  - Vomiting [Recovered/Resolved]
  - Product container issue [None]

NARRATIVE: CASE EVENT DATE: 20191101
